FAERS Safety Report 10452271 (Version 1)
Quarter: 2014Q3

REPORT INFORMATION
  Report Type: Report from Study
  Country: US (occurrence: US)
  Receive Date: 20140915
  Receipt Date: 20140915
  Transmission Date: 20150326
  Serious: Yes (Other)
  Sender: FDA-Public Use
  Company Number: US-ROCHE-1461291

PATIENT
  Age: 37 Year
  Sex: Male
  Weight: 104.42 kg

DRUGS (4)
  1. NUTROPIN AQ [Suspect]
     Active Substance: SOMATROPIN
     Indication: HYPOPITUITARISM
     Dosage: 0.4-0.8MG
     Route: 058
  2. ACYCLOVIR. [Concomitant]
     Active Substance: ACYCLOVIR
     Dosage: AS WHEN NEEDED
     Route: 048
     Dates: start: 20130920
  3. SYNTHROID [Concomitant]
     Active Substance: LEVOTHYROXINE SODIUM
     Route: 048
     Dates: start: 20131210
  4. HYDROCORTISONE. [Concomitant]
     Active Substance: HYDROCORTISONE
     Route: 048
     Dates: start: 20130920

REACTIONS (3)
  - Hyperlipidaemia [Unknown]
  - Insulin-like growth factor decreased [Unknown]
  - Oedema [Unknown]

NARRATIVE: CASE EVENT DATE: 20130703
